FAERS Safety Report 12175165 (Version 1)
Quarter: 2016Q1

REPORT INFORMATION
  Report Type: Report from Study
  Country: BR (occurrence: BR)
  Receive Date: 20160314
  Receipt Date: 20160314
  Transmission Date: 20160526
  Serious: Yes (Other)
  Sender: FDA-Public Use
  Company Number: BR-JNJFOC-20160305232

PATIENT
  Sex: Female

DRUGS (3)
  1. PREDNISONE. [Concomitant]
     Active Substance: PREDNISONE
     Route: 065
  2. OMEPRAZOLE. [Concomitant]
     Active Substance: OMEPRAZOLE
     Route: 065
  3. SIMPONI [Suspect]
     Active Substance: GOLIMUMAB
     Indication: RHEUMATOID ARTHRITIS
     Route: 058
     Dates: start: 20140714

REACTIONS (7)
  - Abdominal pain upper [Unknown]
  - Fall [Unknown]
  - Asthenia [Unknown]
  - Oropharyngeal pain [Unknown]
  - Secretion discharge [Unknown]
  - Vomiting [Unknown]
  - Gastrooesophageal reflux disease [Unknown]
